FAERS Safety Report 7934557-0 (Version None)
Quarter: 2011Q4

REPORT INFORMATION
  Report Type: 
  Country: None (occurrence: None)
  Receive Date: 20111122
  Receipt Date: 20111115
  Transmission Date: 20120403
  Serious: Yes (Other)
  Sender: FDA-Public Use
  Company Number: GB-BRISTOL-MYERS SQUIBB COMPANY-16233918

PATIENT
  Age: 21 Year

DRUGS (2)
  1. MIRTAZAPINE [Suspect]
  2. ABILIFY [Suspect]

REACTIONS (1)
  - DEEP VEIN THROMBOSIS [None]
